FAERS Safety Report 22592902 (Version 1)
Quarter: 2023Q2

REPORT INFORMATION
  Report Type: Spontaneous
  Country: GB (occurrence: None)
  Receive Date: 20230613
  Receipt Date: 20230613
  Transmission Date: 20230721
  Serious: Yes (Congenital Anomaly)
  Sender: FDA-Public Use
  Company Number: GB-ROCHE-3365842

PATIENT

DRUGS (1)
  1. PULMOZYME [Suspect]
     Active Substance: DORNASE ALFA
     Indication: Product used for unknown indication
     Route: 064

REACTIONS (2)
  - Respiratory distress [Unknown]
  - Foetal exposure during pregnancy [Unknown]
